FAERS Safety Report 23330034 (Version 1)
Quarter: 2023Q4

REPORT INFORMATION
  Report Type: Spontaneous
  Country: US (occurrence: None)
  Receive Date: 20231222
  Receipt Date: 20231222
  Transmission Date: 20240110
  Serious: No
  Sender: FDA-Public Use
  Company Number: US-USWM, LLC-UWM202303-000006

PATIENT
  Sex: Female

DRUGS (1)
  1. NADOLOL [Suspect]
     Active Substance: NADOLOL
     Indication: Product used for unknown indication
     Dosage: NOT PROVIDED

REACTIONS (4)
  - Oral discomfort [Unknown]
  - Burning sensation [Unknown]
  - Conjunctivitis allergic [Unknown]
  - Abdominal pain [Unknown]
